FAERS Safety Report 23957212 (Version 3)
Quarter: 2024Q2

REPORT INFORMATION
  Report Type: Spontaneous
  Country: US (occurrence: US)
  Receive Date: 20240610
  Receipt Date: 20240627
  Transmission Date: 20240716
  Serious: No
  Sender: FDA-Public Use
  Company Number: US-MYLANLABS-2024M1043835

PATIENT
  Sex: Female

DRUGS (3)
  1. TYRVAYA [Suspect]
     Active Substance: VARENICLINE TARTRATE
     Indication: Dry eye
     Dosage: 0.03 MILLIGRAM
     Route: 045
     Dates: start: 202405, end: 202405
  2. TELMISARTAN [Concomitant]
     Active Substance: TELMISARTAN
     Indication: Blood pressure measurement
     Dosage: UNK
     Route: 065
  3. SYNTHROID [Concomitant]
     Active Substance: LEVOTHYROXINE SODIUM
     Indication: Thyroid disorder
     Dosage: UNK
     Route: 065

REACTIONS (5)
  - Rhinorrhoea [Unknown]
  - Sneezing [Unknown]
  - Throat irritation [Unknown]
  - Device difficult to use [Unknown]
  - Device delivery system issue [Unknown]

NARRATIVE: CASE EVENT DATE: 20240501
